FAERS Safety Report 9291056 (Version 2)
Quarter: 2013Q3

REPORT INFORMATION
  Report Type: Spontaneous
  Country: US (occurrence: US)
  Receive Date: 20130515
  Receipt Date: 20130705
  Transmission Date: 20140515
  Serious: No
  Sender: FDA-Public Use
  Company Number: US-009507513-1305USA005219

PATIENT
  Age: 71 Year
  Sex: Male
  Weight: 112.2 kg

DRUGS (1)
  1. DULERA [Suspect]
     Indication: ASTHMA
     Dosage: 2 PUFFS TWICE A DAY
     Route: 055
     Dates: start: 201208

REACTIONS (3)
  - Wheezing [Recovering/Resolving]
  - Product quality issue [Recovering/Resolving]
  - Product packaging quantity issue [Unknown]
